FAERS Safety Report 7080600-3 (Version None)
Quarter: 2010Q4

REPORT INFORMATION
  Report Type: 
  Country: None (occurrence: None)
  Receive Date: 20101103
  Receipt Date: 20101026
  Transmission Date: 20110411
  Serious: Yes (Hospitalization)
  Sender: FDA-Public Use
  Company Number: GB-NOVOPROD-317182

PATIENT
  Sex: Female

DRUGS (1)
  1. INSULATARDA? PENFILLA? HM(GE) 3 ML [Suspect]
     Indication: PRODUCT USED FOR UNKNOWN INDICATION

REACTIONS (4)
  - ABDOMINAL PAIN UPPER [None]
  - DEVICE FAILURE [None]
  - INFECTION [None]
  - MALAISE [None]
